FAERS Safety Report 16971439 (Version 1)
Quarter: 2019Q4

REPORT INFORMATION
  Report Type: Spontaneous
  Country: US (occurrence: US)
  Receive Date: 20190912
  Receipt Date: 20190912
  Transmission Date: 20200122
  Serious: Yes (Hospitalization)
  Sender: FDA-Public Use
  Company Number: None

PATIENT
  Age: 54 Year
  Sex: Female

DRUGS (1)
  1. INGREZZA [Suspect]
     Active Substance: VALBENAZINE
     Indication: TARDIVE DYSKINESIA
     Route: 048
     Dates: start: 20190709, end: 20190731

REACTIONS (4)
  - Swollen tongue [None]
  - Blister [None]
  - Swelling [None]
  - Rash [None]

NARRATIVE: CASE EVENT DATE: 20190731
